FAERS Safety Report 5271450-9 (Version None)
Quarter: 2007Q1

REPORT INFORMATION
  Report Type: 
  Country: None (occurrence: None)
  Receive Date: 20070321
  Receipt Date: 20070313
  Transmission Date: 20070707
  Serious: Yes (Life-Threatening, Hospitalization)
  Sender: FDA-Public Use
  Company Number: US-SHR-US-2007-005571

PATIENT
  Age: 52 Year
  Sex: Male

DRUGS (3)
  1. ULTRAVIST 300 [Suspect]
     Dosage: 150 ML, 1 DOSE
     Route: 042
     Dates: start: 20070206, end: 20070206
  2. CELEBREX [Concomitant]
     Dosage: 200 MG, 1X/DAY
  3. ANTACIDS, OTHER COMBINATIONS [Concomitant]
     Dosage: ZEGERID 40/1100

REACTIONS (8)
  - ANAPHYLACTIC SHOCK [None]
  - ANGIOEDEMA [None]
  - BRONCHOSPASM [None]
  - ERYTHEMA [None]
  - FLUSHING [None]
  - TACHYCARDIA [None]
  - TREMOR [None]
  - URTICARIA [None]
